FAERS Safety Report 12297677 (Version 1)
Quarter: 2016Q2

REPORT INFORMATION
  Report Type: Spontaneous
  Country: IE (occurrence: IE)
  Receive Date: 20160422
  Receipt Date: 20160422
  Transmission Date: 20160815
  Serious: Yes (Other)
  Sender: FDA-Public Use
  Company Number: IE-SA-2016SA076428

PATIENT

DRUGS (1)
  1. ALEMTUZUMAB [Suspect]
     Active Substance: ALEMTUZUMAB
     Route: 041

REACTIONS (1)
  - Platelet count decreased [Recovered/Resolved]
